FAERS Safety Report 6415549-X (Version None)
Quarter: 2009Q4

REPORT INFORMATION
  Report Type: 
  Country: None (occurrence: None)
  Receive Date: 20091027
  Receipt Date: 20091020
  Transmission Date: 20100525
  Serious: Yes (Hospitalization, Other)
  Sender: FDA-Public Use
  Company Number: US-BAYER-200912998BCC

PATIENT
  Age: 84 Year
  Sex: Male
  Weight: 86 kg

DRUGS (8)
  1. PHILLIP'S MILK OF MAGNESIA CHERRY [Suspect]
     Indication: LAXATIVE SUPPORTIVE CARE
     Dosage: DOSE: 2 TABLESPOONS
     Route: 048
     Dates: start: 20090801, end: 20090801
  2. SYNTHROID [Concomitant]
     Route: 065
  3. CARBIDOPA-LEVO [Concomitant]
     Route: 065
  4. SELEGILINE HCL [Concomitant]
     Route: 065
  5. ROPINIROLE [Concomitant]
     Route: 065
  6. TRAZIDONE [Concomitant]
     Dosage: TOTAL DAILY DOSE: 1.5 DF
     Route: 065
  7. TRAMADOL HCL [Concomitant]
     Dosage: TOTAL DAILY DOSE: 1 DF
     Route: 065
  8. NABUMETONE [Concomitant]
     Route: 065

REACTIONS (3)
  - FAECES DISCOLOURED [None]
  - FLATULENCE [None]
  - GASTRIC ULCER [None]
